FAERS Safety Report 7163788-5 (Version None)
Quarter: 2010Q4

REPORT INFORMATION
  Report Type: 
  Country: None (occurrence: None)
  Receive Date: 20101215
  Receipt Date: 20101201
  Transmission Date: 20110411
  Serious: Yes (Other)
  Sender: FDA-Public Use
  Company Number: JP-AMGEN-JPNSP2010005241

PATIENT

DRUGS (18)
  1. ENBREL [Suspect]
     Indication: RHEUMATOID ARTHRITIS
     Dosage: 25 MG, WEEKLY
     Route: 058
     Dates: start: 20090304, end: 20091101
  2. ENBREL [Suspect]
     Dosage: 25 MG, 2X/WEEK
     Dates: start: 20091102, end: 20100915
  3. ENBREL [Suspect]
     Dosage: 25 MG, 2X/WEEK
     Dates: start: 20091202, end: 20100915
  4. RHEUMATREX [Concomitant]
     Indication: RHEUMATOID ARTHRITIS
     Dosage: 6 MG, WEEKLY
     Route: 048
     Dates: start: 20100101
  5. RHEUMATREX [Concomitant]
     Dosage: 8 MG, WEEKLY
     Route: 048
  6. RHEUMATREX [Concomitant]
     Dosage: 6 MG, WEEKLY
     Route: 048
     Dates: end: 20100915
  7. RHEUMATREX [Concomitant]
     Dosage: 6 MG, WEEKLY
     Route: 048
     Dates: start: 20100101, end: 20100101
  8. RHEUMATREX [Concomitant]
     Dosage: 8 MG, WEEKLY
     Route: 048
     Dates: start: 20100101, end: 20100818
  9. RHEUMATREX [Concomitant]
     Dosage: 6 MG, WEEKLY
     Route: 048
     Dates: start: 20100818, end: 20100915
  10. RHEUMATREX [Concomitant]
     Dosage: 2 MG, WEEKLY
     Route: 048
     Dates: start: 20090304, end: 20090514
  11. ARAVA [Concomitant]
     Indication: RHEUMATOID ARTHRITIS
     Dosage: UNK
     Route: 048
     Dates: end: 20090514
  12. ARAVA [Concomitant]
     Dosage: 20 MG, 1X/DAY
     Route: 048
     Dates: start: 20090304, end: 20090514
  13. ISONIAZID [Concomitant]
     Dosage: UNK
     Route: 048
     Dates: start: 20090426, end: 20090624
  14. ISONIAZID [Concomitant]
     Dosage: UNK
     Route: 048
     Dates: start: 20090426, end: 20091007
  15. ALFAROL [Concomitant]
     Indication: OSTEOPOROSIS
     Dosage: 1 UG, 1X/DAY
     Route: 048
     Dates: start: 20090304, end: 20100914
  16. FOLIAMIN [Concomitant]
     Dosage: 5 MG, WEEKLY
     Route: 048
     Dates: start: 20090304, end: 20090514
  17. DEPAS [Concomitant]
     Indication: INSOMNIA
     Dosage: 0.5 MG, 1X/DAY
     Route: 048
     Dates: start: 20090304, end: 20100914
  18. LOXONIN [Concomitant]
     Indication: RHEUMATOID ARTHRITIS
     Dosage: 60 MG, 2X/DAY
     Route: 048
     Dates: start: 20090304, end: 20100914

REACTIONS (4)
  - GASTRIC CANCER [None]
  - GRANULOMA [None]
  - LYMPH NODE TUBERCULOSIS [None]
  - MYCOBACTERIAL INFECTION [None]
